FAERS Safety Report 11220178 (Version 1)
Quarter: 2015Q2

REPORT INFORMATION
  Report Type: Spontaneous
  Country: US (occurrence: None)
  Receive Date: 20150624
  Receipt Date: 20150624
  Transmission Date: 20150821
  Serious: Yes (Other)
  Sender: FDA-Public Use
  Company Number: None

PATIENT
  Age: 60 Year
  Sex: Female

DRUGS (3)
  1. MULTIVITAMINS [Concomitant]
     Active Substance: VITAMINS
  2. CITRACAL +VIT D [Concomitant]
  3. MURO 128 [Suspect]
     Active Substance: SODIUM CHLORIDE
     Indication: DRY EYE
     Route: 047
     Dates: start: 20141114, end: 20150601

REACTIONS (6)
  - Eye pruritus [None]
  - Palpitations [None]
  - Dyspnoea [None]
  - Skin disorder [None]
  - Eyelid oedema [None]
  - Ocular hyperaemia [None]

NARRATIVE: CASE EVENT DATE: 20150520
